FAERS Safety Report 20422056 (Version 1)
Quarter: 2022Q1

REPORT INFORMATION
  Report Type: Spontaneous
  Country: GB (occurrence: GB)
  Receive Date: 20220203
  Receipt Date: 20220203
  Transmission Date: 20220423
  Serious: Yes (Other)
  Sender: FDA-Public Use
  Company Number: None

PATIENT
  Age: 42 Year
  Sex: Male
  Weight: 65 kg

DRUGS (7)
  1. ELEXACAFTOR\IVACAFTOR\TEZACAFTOR [Suspect]
     Active Substance: ELEXACAFTOR\IVACAFTOR\TEZACAFTOR
     Indication: Cystic fibrosis
     Dosage: 2 IN AM
     Route: 048
     Dates: start: 20210922
  2. ELEXACAFTOR\IVACAFTOR\TEZACAFTOR [Suspect]
     Active Substance: ELEXACAFTOR\IVACAFTOR\TEZACAFTOR
     Dosage: SWITCHING THE AM AND PM DOSES
     Route: 048
  3. ELEXACAFTOR\IVACAFTOR\TEZACAFTOR [Suspect]
     Active Substance: ELEXACAFTOR\IVACAFTOR\TEZACAFTOR
     Dosage: REDUCING KAFTRIO TO 1 BD
     Route: 048
     Dates: end: 20220117
  4. KALYDECO [Suspect]
     Active Substance: IVACAFTOR
     Indication: Cystic fibrosis
     Dosage: 150MG IN PM
     Route: 048
     Dates: start: 20210922
  5. KALYDECO [Suspect]
     Active Substance: IVACAFTOR
     Dosage: SWITCHING THE AM AND PM DOSES UNK
     Route: 048
     Dates: end: 20220117
  6. BECLOMETHASONE DIPROPIONATE [Concomitant]
     Active Substance: BECLOMETHASONE DIPROPIONATE
  7. ALBUTEROL [Concomitant]
     Active Substance: ALBUTEROL

REACTIONS (4)
  - Anxiety [Recovering/Resolving]
  - Depressed mood [Recovering/Resolving]
  - Poor quality sleep [Unknown]
  - Hypervigilance [Recovering/Resolving]

NARRATIVE: CASE EVENT DATE: 20210901
